FAERS Safety Report 8051254-4 (Version None)
Quarter: 2012Q1

REPORT INFORMATION
  Report Type: 
  Country: None (occurrence: None)
  Receive Date: 20120117
  Receipt Date: 20120110
  Transmission Date: 20120608
  Serious: Yes (Other)
  Sender: FDA-Public Use
  Company Number: US-ASTRAZENECA-2011SE11472

PATIENT
  Age: 44 Year
  Sex: Female
  Weight: 68 kg

DRUGS (23)
  1. SEROQUEL [Suspect]
     Indication: DEPRESSION
     Route: 048
     Dates: start: 20040101
  2. SEROQUEL [Suspect]
     Indication: BIPOLAR II DISORDER
     Route: 048
     Dates: start: 20040101
  3. FUROSEMIDE [Concomitant]
     Indication: CARDIAC DISORDER
  4. GLYCOLAX [Concomitant]
     Indication: CONSTIPATION
  5. MULTI-VITAMIN [Concomitant]
     Indication: NUTRITIONAL SUPPORT
  6. SEROQUEL [Suspect]
     Route: 048
  7. DIGOXIN [Concomitant]
     Indication: CARDIOMYOPATHY
  8. SEROQUEL [Suspect]
     Route: 048
     Dates: end: 20101001
  9. DIGOXIN [Concomitant]
     Indication: CARDIAC DISORDER
  10. SEROQUEL [Suspect]
     Route: 048
  11. FLUTICAZONE [Concomitant]
     Indication: ASTHMA
  12. CARVEDILOL [Concomitant]
  13. SEROQUEL [Suspect]
     Route: 048
  14. SEROQUEL [Suspect]
     Route: 048
  15. SEROQUEL [Suspect]
     Route: 048
  16. SEROQUEL [Suspect]
     Route: 048
  17. SEROQUEL [Suspect]
     Route: 048
  18. SEROQUEL [Suspect]
     Route: 048
     Dates: end: 20101001
  19. CORVIL [Concomitant]
     Indication: CARDIAC DISORDER
  20. SEROQUEL [Suspect]
     Route: 048
  21. LISINOPRIL [Concomitant]
     Indication: CARDIAC DISORDER
  22. ASPIRIN [Concomitant]
     Indication: CARDIAC DISORDER
  23. ABILIFY [Concomitant]
     Indication: DEPRESSION

REACTIONS (9)
  - DEPRESSION [None]
  - MANIA [None]
  - WEIGHT INCREASED [None]
  - DRUG DOSE OMISSION [None]
  - DRUG INEFFECTIVE [None]
  - RENAL DISORDER [None]
  - IMPAIRED WORK ABILITY [None]
  - LETHARGY [None]
  - INSOMNIA [None]
